FAERS Safety Report 16297850 (Version 2)
Quarter: 2019Q2

REPORT INFORMATION
  Report Type: Spontaneous
  Country: US (occurrence: US)
  Receive Date: 20190510
  Receipt Date: 20190620
  Transmission Date: 20190711
  Serious: No
  Sender: FDA-Public Use
  Company Number: US-ASTRAZENECA-2019SE57412

PATIENT
  Age: 75 Year
  Sex: Male
  Weight: 74.8 kg

DRUGS (3)
  1. BABY ASPIRIN [Concomitant]
     Active Substance: ASPIRIN
     Route: 048
  2. BEVESPI AEROSPHERE [Suspect]
     Active Substance: FORMOTEROL FUMARATE\GLYCOPYRROLATE
     Indication: CHRONIC OBSTRUCTIVE PULMONARY DISEASE
     Dosage: 9MCG/4.8MCG 2 PUFFS TWICE A DAY
     Route: 055
     Dates: start: 201804
  3. ISOTROPIUM BROMIDE ALBUTEROL [Concomitant]

REACTIONS (6)
  - Device issue [Unknown]
  - Weight decreased [Unknown]
  - Blood glucose fluctuation [Unknown]
  - Off label use [Unknown]
  - Wrong technique in product usage process [Unknown]
  - Incorrect dose administered by device [Unknown]
